FAERS Safety Report 9715083 (Version 1)
Quarter: 2013Q4

REPORT INFORMATION
  Report Type: Spontaneous
  Country: US (occurrence: US)
  Receive Date: 20131126
  Receipt Date: 20131126
  Transmission Date: 20140711
  Serious: No
  Sender: FDA-Public Use
  Company Number: US-NOVEN-13US007978

PATIENT
  Age: 49 Year
  Sex: Female

DRUGS (2)
  1. MINIVELLE [Suspect]
     Indication: HOT FLUSH
     Dosage: 0.05 MG/DAY, TWICE WEEKLY
     Dates: start: 2013
  2. MINIVELLE [Suspect]
     Indication: HORMONE REPLACEMENT THERAPY

REACTIONS (3)
  - Wrong technique in drug usage process [Recovered/Resolved]
  - Product quality issue [Not Recovered/Not Resolved]
  - No adverse event [Unknown]
